FAERS Safety Report 25240170 (Version 7)
Quarter: 2025Q4

REPORT INFORMATION
  Report Type: Report from Study
  Country: CA (occurrence: CA)
  Receive Date: 20250425
  Receipt Date: 20251231
  Transmission Date: 20260117
  Serious: Yes (Other)
  Sender: PFIZER
  Company Number: CA-PFIZER INC-202500080835

PATIENT
  Age: 51 Year
  Sex: Female
  Weight: 105 kg

DRUGS (8)
  1. IXIFI [Suspect]
     Active Substance: INFLIXIMAB-QBTX
     Indication: Colitis ulcerative
     Dosage: 1 DF, DOSAGE INFO UNKNOWN START IN HOSPITAL
     Route: 042
     Dates: start: 20250329, end: 20250329
  2. IXIFI [Suspect]
     Active Substance: INFLIXIMAB-QBTX
     Dosage: 1100 MG, WEEK 2 AND 6 (10 MG/KG)
     Route: 042
     Dates: start: 20250417
  3. IXIFI [Suspect]
     Active Substance: INFLIXIMAB-QBTX
     Dosage: 1100 MG, WEEK 6 (10 MG/KG WEEK 2 AND 6)
     Route: 042
     Dates: start: 20250515
  4. IXIFI [Suspect]
     Active Substance: INFLIXIMAB-QBTX
     Dosage: 600 MG, EVERY 8 WEEKS (5 MG/KG)
     Route: 042
     Dates: start: 20250710
  5. IXIFI [Suspect]
     Active Substance: INFLIXIMAB-QBTX
     Dosage: 600 MG, EVERY 8 WEEKS (5 MG/KG)
     Route: 042
     Dates: start: 20250904
  6. IXIFI [Suspect]
     Active Substance: INFLIXIMAB-QBTX
     Dosage: 600 MG. EVERY 8 WEEKS (5 MG/KG)
     Route: 042
     Dates: start: 20251030
  7. IXIFI [Suspect]
     Active Substance: INFLIXIMAB-QBTX
     Dosage: 600 MG, AFTER 8 WEEK (EVERY 8 WEEKS, 5MG/KG)
     Route: 042
     Dates: start: 20251223
  8. PREDNISONE [Concomitant]
     Active Substance: PREDNISONE
     Dosage: UNK

REACTIONS (7)
  - Pulmonary congestion [Unknown]
  - Diarrhoea [Unknown]
  - Headache [Unknown]
  - Oropharyngeal pain [Unknown]
  - Influenza [Unknown]
  - Condition aggravated [Recovering/Resolving]
  - Inappropriate schedule of product administration [Unknown]

NARRATIVE: CASE EVENT DATE: 20250101
